FAERS Safety Report 10433233 (Version 1)
Quarter: 2014Q3

REPORT INFORMATION
  Report Type: Report from Study
  Country: US (occurrence: US)
  Receive Date: 20140905
  Receipt Date: 20140905
  Transmission Date: 20150326
  Serious: Yes (Hospitalization, Other)
  Sender: FDA-Public Use
  Company Number: US-ABBVIE-14K-163-1277487-00

PATIENT
  Age: 78 Year
  Sex: Female
  Weight: 41.77 kg

DRUGS (6)
  1. HUMIRA [Suspect]
     Active Substance: ADALIMUMAB
     Dates: end: 201307
  2. PRED FORTE [Concomitant]
     Active Substance: PREDNISOLONE ACETATE
     Indication: RETINAL DETACHMENT
  3. HUMIRA [Suspect]
     Active Substance: ADALIMUMAB
     Indication: RHEUMATOID ARTHRITIS
     Dates: start: 2003
  4. HUMIRA [Suspect]
     Active Substance: ADALIMUMAB
     Dates: start: 201407
  5. ALLERGAN [Concomitant]
     Active Substance: PAPAIN
     Indication: GLAUCOMA
  6. UNNAMED EYE DROPS [Concomitant]
     Indication: GLAUCOMA

REACTIONS (2)
  - Haemoglobin decreased [Recovered/Resolved]
  - Bladder cancer [Recovered/Resolved]

NARRATIVE: CASE EVENT DATE: 201307
